FAERS Safety Report 9833524 (Version 4)
Quarter: 2014Q1

REPORT INFORMATION
  Report Type: Report from Study
  Country: CO (occurrence: CO)
  Receive Date: 20140122
  Receipt Date: 20140314
  Transmission Date: 20141002
  Serious: Yes (Hospitalization, Other)
  Sender: FDA-Public Use
  Company Number: CO-ROCHE-1336468

PATIENT
  Age: 67 Year
  Sex: Male
  Weight: 65 kg

DRUGS (6)
  1. RANIBIZUMAB [Suspect]
     Indication: BLINDNESS
     Route: 050
     Dates: start: 201307
  2. RANIBIZUMAB [Suspect]
     Route: 050
     Dates: start: 201310
  3. RANIBIZUMAB [Suspect]
     Dosage: THREE APPLICATIONS PER EYE EVERY MONTH
     Route: 050
     Dates: start: 201311
  4. AMLODIPINE [Concomitant]
  5. INSULIN [Concomitant]
  6. FUROSEMIDE [Concomitant]

REACTIONS (5)
  - Renal failure chronic [Unknown]
  - Pulmonary oedema [Recovering/Resolving]
  - Eye haemorrhage [Recovered/Resolved]
  - Weight decreased [Unknown]
  - Inappropriate schedule of drug administration [Unknown]
